FAERS Safety Report 11908600 (Version 2)
Quarter: 2016Q1

REPORT INFORMATION
  Report Type: Report from Study
  Country: PT (occurrence: PT)
  Receive Date: 20160111
  Receipt Date: 20160208
  Transmission Date: 20160526
  Serious: Yes (Death, Other)
  Sender: FDA-Public Use
  Company Number: PT-GILEAD-2016-0191753

PATIENT
  Age: 53 Year
  Sex: Male

DRUGS (2)
  1. IDELALISIB [Suspect]
     Active Substance: IDELALISIB
     Indication: CHRONIC LYMPHOCYTIC LEUKAEMIA
     Dosage: 150 MG, UNK
     Route: 048
     Dates: start: 20151107, end: 20151220
  2. RITUXIMAB [Concomitant]
     Active Substance: RITUXIMAB
     Indication: CHRONIC LYMPHOCYTIC LEUKAEMIA
     Dosage: UNK
     Route: 065
     Dates: start: 20151107, end: 20151220

REACTIONS (3)
  - Cardio-respiratory arrest [Fatal]
  - Respiratory disorder [Fatal]
  - Respiratory tract infection [Fatal]

NARRATIVE: CASE EVENT DATE: 20151220
